FAERS Safety Report 21208071 (Version 1)
Quarter: 2022Q3

REPORT INFORMATION
  Report Type: Other
  Country: CR (occurrence: None)
  Receive Date: 20220812
  Receipt Date: 20220812
  Transmission Date: 20221027
  Serious: Yes (Other)
  Sender: FDA-Public Use
  Company Number: CR-Invatech-000261

PATIENT
  Age: 26 Year
  Sex: Female

DRUGS (4)
  1. FOLIC ACID [Suspect]
     Active Substance: FOLIC ACID
     Indication: Skin ulcer
  2. ASPIRIN [Suspect]
     Active Substance: ASPIRIN
     Indication: Skin ulcer
  3. AZATHIOPRINE [Suspect]
     Active Substance: AZATHIOPRINE
     Indication: Skin ulcer
     Dosage: 2.5 MG/KG
  4. PREDNISONE [Suspect]
     Active Substance: PREDNISONE
     Indication: Skin ulcer
     Dosage: 15 MG/DAY

REACTIONS (3)
  - Segmented hyalinising vasculitis [Recovered/Resolved]
  - Disease recurrence [Recovered/Resolved]
  - Therapeutic product effect decreased [Recovered/Resolved]
